FAERS Safety Report 5396328-1 (Version None)
Quarter: 2007Q3

REPORT INFORMATION
  Report Type: 
  Country: None (occurrence: None)
  Receive Date: 20070725
  Receipt Date: 20070713
  Transmission Date: 20080115
  Serious: Yes (Death, Hospitalization, Other)
  Sender: FDA-Public Use
  Company Number: US-ELI_LILLY_AND_COMPANY-US200704002549

PATIENT
  Age: 71 Year
  Sex: Female

DRUGS (17)
  1. HUMULIN N [Suspect]
     Indication: DIABETES MELLITUS
     Dosage: 15 U, EACH MORNING
  2. HUMULIN N [Suspect]
     Dosage: 30 U, EACH MORNING
  3. HUMULIN R [Suspect]
     Indication: DIABETES MELLITUS
     Dates: start: 20060101
  4. ASPIRIN [Concomitant]
     Dosage: 81 MG, DAILY (1/D)
  5. CLONIDINE [Concomitant]
     Dosage: 0.1 MG, 3/D
  6. TIMOLOL MALEATE [Concomitant]
     Dosage: 0.5 %, DAILY (1/D), EACH EYE
  7. LUMIGAN [Concomitant]
     Dosage: 0.03 %, DAILY (1/D), LEFT EYE
  8. PLAVIX [Concomitant]
     Dosage: 75 MG, DAILY (1/D)
  9. NEXIUM [Concomitant]
     Dosage: 40 MG, DAILY (1/D)
  10. LASIX [Concomitant]
     Dosage: 40 MG, DAILY (1/D)
  11. UNITHROID [Concomitant]
     Dosage: 112 UG, DAILY (1/D)
  12. VYTORIN [Concomitant]
     Dosage: 10/40 MG, DAILY (1/D)
  13. NIFEDIPINE [Concomitant]
     Dosage: 60 MG, 2/D
  14. ISOSORBIDE MONONITRATE [Concomitant]
     Dosage: 30 MG, DAILY (1/D)
  15. DIFLUCAN [Concomitant]
     Dosage: 100 MG, 1/2 TABLET
  16. ZEMPLAR [Concomitant]
     Dosage: 1 UG, DAILY (1/D)
  17. SODIUM POLYSTYRENE SULFONATE [Concomitant]
     Dosage: 60 ML, WEEKLY (1/W)

REACTIONS (12)
  - ACUTE MYOCARDIAL INFARCTION [None]
  - BLOOD POTASSIUM INCREASED [None]
  - CATHETER RELATED INFECTION [None]
  - COLD SWEAT [None]
  - COMA [None]
  - CONVULSION [None]
  - DIALYSIS DEVICE INSERTION [None]
  - DIARRHOEA [None]
  - HEART RATE IRREGULAR [None]
  - MUSCULOSKELETAL STIFFNESS [None]
  - SHOCK HYPOGLYCAEMIC [None]
  - TREMOR [None]
